FAERS Safety Report 10537837 (Version 1)
Quarter: 2014Q4

REPORT INFORMATION
  Report Type: Spontaneous
  Country: US (occurrence: None)
  Receive Date: 20141022
  Receipt Date: 20141022
  Transmission Date: 20150529
  Serious: Yes (Other)
  Sender: FDA-Public Use
  Company Number: None

PATIENT
  Age: 57 Year
  Sex: Male

DRUGS (1)
  1. STIVARGA [Suspect]
     Active Substance: REGORAFENIB
     Indication: GASTROINTESTINAL NEOPLASM
     Dosage: 160 MG DAILY FOR 21 DAYS THEN 7
     Route: 048
     Dates: start: 20140828

REACTIONS (3)
  - Stomatitis [None]
  - Skin disorder [None]
  - Blood pressure increased [None]
